FAERS Safety Report 16769480 (Version 1)
Quarter: 2019Q3

REPORT INFORMATION
  Report Type: Spontaneous
  Country: US (occurrence: US)
  Receive Date: 20190903
  Receipt Date: 20190903
  Transmission Date: 20191005
  Serious: No
  Sender: FDA-Public Use
  Company Number: US-009507513-1908USA012992

PATIENT
  Age: 59 Year

DRUGS (1)
  1. PROVENTIL [Suspect]
     Active Substance: ALBUTEROL

REACTIONS (4)
  - Product taste abnormal [Unknown]
  - Traumatic lung injury [Unknown]
  - Cough [Unknown]
  - No adverse event [Unknown]

NARRATIVE: CASE EVENT DATE: 20190827
